FAERS Safety Report 4313352-8 (Version None)
Quarter: 2004Q1

REPORT INFORMATION
  Report Type: 
  Country: None (occurrence: None)
  Receive Date: 20040304
  Receipt Date: 20040217
  Transmission Date: 20041129
  Serious: Yes (Other)
  Sender: FDA-Public Use
  Company Number: AU_040207407

PATIENT
  Age: 89 Year
  Sex: Female

DRUGS (4)
  1. EVISTA [Suspect]
     Indication: OSTEOPOROSIS POSTMENOPAUSAL
     Dosage: 60 MG/DAY
     Dates: start: 20011101, end: 20040101
  2. ATENOLOL [Concomitant]
  3. COVERSYL (PERINDOPRIL) [Concomitant]
  4. VOLTAREN [Concomitant]

REACTIONS (4)
  - BLINDNESS [None]
  - CEREBRAL HAEMORRHAGE [None]
  - CEREBRAL INFARCTION [None]
  - RETINAL VEIN THROMBOSIS [None]
